FAERS Safety Report 11933821 (Version 4)
Quarter: 2017Q4

REPORT INFORMATION
  Report Type: Spontaneous
  Country: SG (occurrence: SG)
  Receive Date: 20160121
  Receipt Date: 20171031
  Transmission Date: 20180320
  Serious: Yes (Hospitalization)
  Sender: FDA-Public Use
  Company Number: SG-SUN PHARMACEUTICAL INDUSTRIES LTD-2016RR-110021

PATIENT

DRUGS (6)
  1. BICALUTAMIDE. [Interacting]
     Active Substance: BICALUTAMIDE
     Indication: UPPER RESPIRATORY TRACT INFECTION
     Dosage: 50 MG, QD, EVERY MORNING
     Route: 065
  2. DEXTROMETHORPHAN [Interacting]
     Active Substance: DEXTROMETHORPHAN
     Indication: UPPER RESPIRATORY TRACT INFECTION
     Dosage: UNK
     Route: 065
  3. VALSARTAN. [Interacting]
     Active Substance: VALSARTAN
     Indication: HYPERLIPIDAEMIA
     Dosage: 80 MG, QD, EVERY MORNING
     Route: 065
  4. CHLORPHENIRAMINE. [Interacting]
     Active Substance: CHLORPHENIRAMINE
     Indication: UPPER RESPIRATORY TRACT INFECTION
     Dosage: 2 MG, TID
     Route: 065
  5. MEMANTINE. [Suspect]
     Active Substance: MEMANTINE
     Indication: DEMENTIA ALZHEIMER^S TYPE
     Dosage: 10 MG, BID
     Route: 048
  6. LEVOFLOXACIN. [Interacting]
     Active Substance: LEVOFLOXACIN
     Indication: UPPER RESPIRATORY TRACT INFECTION
     Dosage: 500 MG, DAILY, EVERY MORNING
     Route: 048

REACTIONS (4)
  - Incorrect dose administered [Unknown]
  - Myoclonus [Recovered/Resolved]
  - Confusional state [Unknown]
  - Drug interaction [Unknown]
